FAERS Safety Report 19011388 (Version 1)
Quarter: 2021Q1

REPORT INFORMATION
  Report Type: Spontaneous
  Country: FR (occurrence: FR)
  Receive Date: 20210315
  Receipt Date: 20210315
  Transmission Date: 20210420
  Serious: Yes (Hospitalization)
  Sender: FDA-Public Use
  Company Number: FR-JNJFOC-20210326261

PATIENT
  Age: 57 Year
  Sex: Female

DRUGS (1)
  1. YONDELIS [Suspect]
     Active Substance: TRABECTEDIN
     Indication: SARCOMA UTERUS
     Dosage: CYCLE 1 DAY 1
     Route: 042
     Dates: start: 20201110, end: 20201201

REACTIONS (5)
  - Nausea [Recovering/Resolving]
  - Pulmonary embolism [Recovering/Resolving]
  - Asthenia [Recovering/Resolving]
  - Cholangitis acute [Recovering/Resolving]
  - Cholestasis [Recovering/Resolving]

NARRATIVE: CASE EVENT DATE: 202011
